FAERS Safety Report 5277353-8 (Version None)
Quarter: 2007Q1

REPORT INFORMATION
  Report Type: 
  Country: None (occurrence: None)
  Receive Date: 20061213
  Receipt Date: 20040827
  Transmission Date: 20070707
  Serious: Yes (Disabling)
  Sender: FDA-Public Use
  Company Number: 2004UW12429

PATIENT
  Age: 75 Year
  Sex: Male
  Weight: 95.2554 kg

DRUGS (6)
  1. SEROQUEL [Suspect]
     Indication: HALLUCINATION
     Dosage: 100 MG HS PO
     Route: 048
     Dates: start: 20020601
  2. UNITHROID [Concomitant]
  3. CARBIDOPA [Concomitant]
  4. LEVODOPA [Concomitant]
  5. MIRAPEX [Concomitant]
  6. LUPRON [Concomitant]

REACTIONS (1)
  - ANAEMIA [None]
